FAERS Safety Report 22345573 (Version 1)
Quarter: 2023Q2

REPORT INFORMATION
  Report Type: Spontaneous
  Country: TW (occurrence: TW)
  Receive Date: 20230519
  Receipt Date: 20230519
  Transmission Date: 20230722
  Serious: Yes (Hospitalization)
  Sender: FDA-Public Use
  Company Number: TW-DSJP-DSJ-2023-119362AA

PATIENT
  Sex: Female
  Weight: 47 kg

DRUGS (2)
  1. EDOXABAN [Suspect]
     Active Substance: EDOXABAN
     Indication: Embolism venous
     Dosage: 30 MG, QD
     Route: 048
     Dates: start: 201908, end: 20220420
  2. EDOXABAN [Suspect]
     Active Substance: EDOXABAN
     Dosage: 30 MG, QD
     Route: 048

REACTIONS (4)
  - Embolism venous [Unknown]
  - Upper gastrointestinal haemorrhage [Recovered/Resolved]
  - Haematemesis [Unknown]
  - Decreased activity [Unknown]

NARRATIVE: CASE EVENT DATE: 20220420
